FAERS Safety Report 19681686 (Version 2)
Quarter: 2021Q3

REPORT INFORMATION
  Report Type: Report from Study
  Country: EG (occurrence: EG)
  Receive Date: 20210810
  Receipt Date: 20210904
  Transmission Date: 20211014
  Serious: Yes (Other)
  Sender: FDA-Public Use
  Company Number: NVSC2021EG178233

PATIENT
  Sex: Female
  Weight: 13 kg

DRUGS (4)
  1. ZINC. [Concomitant]
     Active Substance: ZINC
     Indication: PRODUCT USED FOR UNKNOWN INDICATION
     Dosage: 3 ML, QD
     Route: 065
  2. OMNITROPE [Suspect]
     Active Substance: SOMATROPIN
     Indication: GROWTH HORMONE DEFICIENCY
     Dosage: 0.4 MG, QD (AS PER REPORTER ABOUT 2 YEARS AGO)
     Route: 058
  3. OMNITROPE [Suspect]
     Active Substance: SOMATROPIN
     Dosage: UNK
     Route: 058
  4. CALCIUM [Concomitant]
     Active Substance: CALCIUM
     Indication: PRODUCT USED FOR UNKNOWN INDICATION
     Dosage: FULL SIZE DROPPER PER DAY
     Route: 065

REACTIONS (4)
  - Product dose omission issue [Recovered/Resolved]
  - Oropharyngeal pain [Recovering/Resolving]
  - Syncope [Recovered/Resolved]
  - Wrong technique in device usage process [Unknown]
